FAERS Safety Report 9512795 (Version 2)
Quarter: 2013Q3

REPORT INFORMATION
  Report Type: Spontaneous
  Country: JP (occurrence: JP)
  Receive Date: 20130910
  Receipt Date: 20130910
  Transmission Date: 20140515
  Serious: Yes (Other)
  Sender: FDA-Public Use
  Company Number: JP-B.I. PHARMACEUTICALS,INC./RIDGEFIELD-2013-BI-14202NB

PATIENT
  Age: 78 Year
  Sex: Male
  Weight: 56.8 kg

DRUGS (15)
  1. TRAZENTA [Suspect]
     Indication: TYPE 2 DIABETES MELLITUS
     Dosage: 5 MG
     Route: 048
     Dates: start: 20130413, end: 20130418
  2. PRECEDEX [Suspect]
     Indication: RESTLESSNESS
     Dosage: 162 MCG
     Route: 065
     Dates: start: 20130410, end: 20130417
  3. PLAVIX [Concomitant]
     Indication: ACUTE MYOCARDIAL INFARCTION
     Dosage: 75 MG
     Route: 048
     Dates: start: 20130402
  4. BAYASPIRIN [Concomitant]
     Indication: ACUTE MYOCARDIAL INFARCTION
     Dosage: 100 MG
     Route: 048
     Dates: start: 20130402
  5. LIVALO [Concomitant]
     Indication: HYPERCHOLESTEROLAEMIA
     Dosage: 2 MG
     Route: 048
     Dates: start: 20130410
  6. LENIMEC [Concomitant]
     Indication: CARDIAC FAILURE ACUTE
     Dosage: 2.5 MG
     Route: 048
     Dates: start: 20130410
  7. ARTIST [Concomitant]
     Indication: CARDIAC FAILURE ACUTE
     Dosage: 5 MG
     Route: 048
     Dates: start: 20130410
  8. MAGMITT [Concomitant]
     Indication: CONSTIPATION
     Dosage: 1000 MG
     Route: 048
     Dates: start: 20130410
  9. SODIUM RABEPRAZOLE [Concomitant]
     Indication: GASTROOESOPHAGEAL REFLUX DISEASE
     Dosage: 10 MG
     Route: 048
     Dates: start: 20130410
  10. NICORANDIL [Concomitant]
     Route: 048
     Dates: start: 20130410
  11. HEPARIN NA [Concomitant]
     Indication: DEEP VEIN THROMBOSIS
     Dosage: 10000 U
     Route: 065
     Dates: start: 20130415, end: 20130423
  12. HANP [Concomitant]
     Indication: CARDIAC FAILURE ACUTE
     Dosage: 1920 MCG
     Route: 065
     Dates: start: 201304, end: 20130417
  13. WARFARIN [Concomitant]
     Indication: DEEP VEIN THROMBOSIS
     Dosage: 4 MG
     Route: 065
     Dates: start: 20130415, end: 20130423
  14. WARFARIN [Concomitant]
     Indication: DEEP VEIN THROMBOSIS
     Dosage: 3 MG
     Route: 065
     Dates: start: 20130424
  15. GLIMEPIRIDE [Concomitant]
     Route: 065
     Dates: start: 20130417

REACTIONS (2)
  - Deep vein thrombosis [Recovered/Resolved]
  - Liver disorder [Recovered/Resolved]
